FAERS Safety Report 22215601 (Version 1)
Quarter: 2023Q2

REPORT INFORMATION
  Report Type: Spontaneous
  Country: US (occurrence: US)
  Receive Date: 20230416
  Receipt Date: 20230416
  Transmission Date: 20230721
  Serious: No
  Sender: FDA-Public Use
  Company Number: US-JNJFOC-20230420445

PATIENT
  Age: 40 Year
  Sex: Female
  Weight: 118.04 kg

DRUGS (2)
  1. REMICADE [Suspect]
     Active Substance: INFLIXIMAB
     Indication: Sarcoidosis
     Route: 041
     Dates: start: 2018
  2. REMICADE [Suspect]
     Active Substance: INFLIXIMAB
     Route: 041

REACTIONS (9)
  - Anaemia [Unknown]
  - Abdominal distension [Unknown]
  - Overweight [Unknown]
  - Chromaturia [Unknown]
  - Adverse drug reaction [Unknown]
  - Sinus pain [Recovered/Resolved]
  - Head discomfort [Recovered/Resolved]
  - Product dose omission issue [Recovered/Resolved]
  - Product use in unapproved indication [Unknown]

NARRATIVE: CASE EVENT DATE: 20221001
